FAERS Safety Report 21534734 (Version 1)
Quarter: 2022Q4

REPORT INFORMATION
  Report Type: Spontaneous
  Country: US (occurrence: US)
  Receive Date: 20221101
  Receipt Date: 20221101
  Transmission Date: 20230113
  Serious: No
  Sender: FDA-Public Use
  Company Number: US-MIGRATION_PFIZER-2022BHV001751

PATIENT
  Age: 46 Year
  Sex: Female
  Weight: 51.756 kg

DRUGS (3)
  1. NURTEC ODT [Suspect]
     Active Substance: RIMEGEPANT SULFATE
     Indication: Migraine
     Dosage: TAKING THE PRODUCT WITH AND WITHOUT FOOD; TAKING NURTEC AT THE FIRST SIGN OF A MIGRAINE SO IT WON^T
     Route: 048
     Dates: start: 202204
  2. TYLENOL [Concomitant]
     Active Substance: ACETAMINOPHEN
     Indication: Migraine
     Dosage: TAKING ON A DAILY BASIS
     Route: 065
  3. BOTOX [Concomitant]
     Active Substance: ONABOTULINUMTOXINA
     Indication: Migraine

REACTIONS (1)
  - Drug ineffective [Unknown]
